FAERS Safety Report 18311032 (Version 2)
Quarter: 2020Q4

REPORT INFORMATION
  Report Type: Spontaneous
  Country: JP (occurrence: JP)
  Receive Date: 20200925
  Receipt Date: 20201008
  Transmission Date: 20210113
  Serious: Yes (Hospitalization)
  Sender: FDA-Public Use
  Company Number: JP-AMGEN-JPNSP2020155089

PATIENT

DRUGS (5)
  1. ROMIPLATE [Suspect]
     Active Substance: ROMIPLOSTIM
     Dosage: 0.5 MG
     Route: 058
     Dates: start: 20200902, end: 20200902
  2. ROMIPLATE [Suspect]
     Active Substance: ROMIPLOSTIM
     Dosage: 0.5 MG
     Route: 058
     Dates: start: 20200915, end: 20200915
  3. ROMIPLATE [Suspect]
     Active Substance: ROMIPLOSTIM
     Indication: IMMUNE THROMBOCYTOPENIA
     Dosage: ONCE EVERY 10 DAYS
     Route: 058
  4. ROMIPLATE [Suspect]
     Active Substance: ROMIPLOSTIM
     Dosage: 0.42 MG
     Route: 058
     Dates: start: 20200825, end: 20200825
  5. ROMIPLATE [Suspect]
     Active Substance: ROMIPLOSTIM
     Dosage: UNK
     Route: 058
     Dates: start: 2018

REACTIONS (1)
  - Platelet count decreased [Recovering/Resolving]

NARRATIVE: CASE EVENT DATE: 20200915
